FAERS Safety Report 24029933 (Version 1)
Quarter: 2024Q2

REPORT INFORMATION
  Report Type: Spontaneous
  Country: US (occurrence: None)
  Receive Date: 20240628
  Receipt Date: 20240628
  Transmission Date: 20240716
  Serious: Yes (Life-Threatening, Hospitalization)
  Sender: FDA-Public Use
  Company Number: None

PATIENT
  Age: 40 Year
  Sex: Female
  Weight: 129.5 kg

DRUGS (1)
  1. LEVOCARNITINE\SEMAGLUTIDE [Suspect]
     Active Substance: LEVOCARNITINE\SEMAGLUTIDE

REACTIONS (2)
  - Anaphylactic reaction [None]
  - Cerebrovascular accident [None]

NARRATIVE: CASE EVENT DATE: 20240626
